FAERS Safety Report 19678411 (Version 1)
Quarter: 2021Q3

REPORT INFORMATION
  Report Type: Report from Study
  Country: IT (occurrence: IT)
  Receive Date: 20210810
  Receipt Date: 20210810
  Transmission Date: 20211014
  Serious: Yes (Hospitalization)
  Sender: FDA-Public Use
  Company Number: IT-TEVA-2021-IT-1940279

PATIENT
  Age: 87 Year

DRUGS (6)
  1. TARGIN 20 MG/10MG COMPRESSE A RILASCIO PROLUNGATO [Concomitant]
     Active Substance: NALOXONE HYDROCHLORIDE\OXYCODONE HYDROCHLORIDE
     Dosage: 30MG; EXTENDED RELEASE TABLETS
     Route: 048
  2. TORASEMIDE [Concomitant]
     Active Substance: TORSEMIDE
     Indication: HYPERTENSION
     Dosage: 5MG
     Route: 048
  3. CARDIOASPIRIN 100 MG COMPRESSE GASTRORESISTENTI [Concomitant]
     Active Substance: ASPIRIN
     Dosage: 100MG
     Route: 048
  4. PALEXIA [Concomitant]
     Active Substance: TAPENTADOL HYDROCHLORIDE
     Dosage: UNIT DOSE: 25MG; EXTENDED RELEASE TABLETS
     Route: 048
  5. LUVION 50 MG COMPRESSE [Suspect]
     Active Substance: CANRENONE
     Indication: HYPERTENSION
     Dosage: 25MG
     Route: 048
  6. ENALAPRIL [Suspect]
     Active Substance: ENALAPRIL
     Indication: HYPERTENSION
     Dosage: 20MG
     Route: 048

REACTIONS (4)
  - Hyperkalaemia [Recovering/Resolving]
  - Asthenia [Recovering/Resolving]
  - Disorientation [Recovering/Resolving]
  - Speech disorder [Recovering/Resolving]

NARRATIVE: CASE EVENT DATE: 20210613
